FAERS Safety Report 8845889 (Version 6)
Quarter: 2013Q4

REPORT INFORMATION
  Report Type: Spontaneous
  Country: US (occurrence: US)
  Receive Date: 20121017
  Receipt Date: 20131007
  Transmission Date: 20140711
  Serious: Yes (Hospitalization, Other)
  Sender: FDA-Public Use
  Company Number: US-MERCK-1210USA005858

PATIENT
  Sex: Female
  Weight: 59 kg

DRUGS (9)
  1. FOSAMAX [Suspect]
     Indication: OSTEOPENIA
     Dosage: 5 MG, UNK
     Route: 048
     Dates: start: 200002, end: 200411
  2. FOSAMAX [Suspect]
     Indication: OSTEOPOROSIS
     Dosage: 35 MG, UNK
     Route: 048
     Dates: start: 200412, end: 200703
  3. FOSAMAX [Suspect]
     Dosage: 70 MG, QW
     Route: 048
  4. FOSAMAX [Suspect]
     Indication: OSTEOPOROSIS
     Dosage: 70 MG, UNK
     Route: 048
     Dates: start: 20090130, end: 201012
  5. FOSAMAX [Suspect]
     Dosage: 70 MG, QW
     Route: 048
  6. VITAMIN E [Concomitant]
     Dosage: 400 MG, QD
     Dates: start: 1997
  7. FOSAMAX PLUS D [Suspect]
     Indication: OSTEOPOROSIS
     Dosage: 70MG-2800IU,UNK
     Route: 048
     Dates: start: 20070424, end: 200901
  8. CALCIUM (UNSPECIFIED) [Concomitant]
     Indication: OSTEOPOROSIS
  9. CALCIUM (UNSPECIFIED) [Concomitant]
     Indication: OSTEOPENIA

REACTIONS (7)
  - Femur fracture [Unknown]
  - Intramedullary rod insertion [Unknown]
  - Intramedullary rod insertion [Unknown]
  - Femur fracture [Unknown]
  - Low turnover osteopathy [Unknown]
  - Hypertension [Unknown]
  - Medical device removal [Unknown]
